FAERS Safety Report 10081858 (Version 1)
Quarter: 2014Q2

REPORT INFORMATION
  Report Type: Spontaneous
  Country: JP (occurrence: JP)
  Receive Date: 20140416
  Receipt Date: 20140416
  Transmission Date: 20141212
  Serious: Yes (Death)
  Sender: FDA-Public Use
  Company Number: JP-GLAXOSMITHKLINE-B0986037A

PATIENT
  Age: 7 Decade
  Sex: Male

DRUGS (5)
  1. ARZERRA [Suspect]
     Indication: CHRONIC LYMPHOCYTIC LEUKAEMIA
     Route: 042
     Dates: start: 20140115, end: 20140115
  2. ARZERRA [Suspect]
     Indication: CHRONIC LYMPHOCYTIC LEUKAEMIA
     Route: 042
     Dates: start: 20140305, end: 20140305
  3. ADRENAL HORMONE PREPARATION [Concomitant]
     Route: 065
     Dates: start: 20140305, end: 20140305
  4. ACETAMINOPHEN [Concomitant]
     Route: 065
     Dates: start: 20140305, end: 20140305
  5. ANTIHISTAMINES [Concomitant]
     Route: 065
     Dates: start: 20140305, end: 20140305

REACTIONS (1)
  - Pneumonia [Fatal]
